FAERS Safety Report 7422235-6 (Version None)
Quarter: 2011Q2

REPORT INFORMATION
  Report Type: 
  Country: None (occurrence: None)
  Receive Date: 20110418
  Receipt Date: 20110407
  Transmission Date: 20111010
  Serious: Yes (Other)
  Sender: FDA-Public Use
  Company Number: US-CEPHALON-US021006

PATIENT
  Sex: Female
  Weight: 91 kg

DRUGS (18)
  1. PROVIGIL [Suspect]
     Indication: CHRONIC FATIGUE SYNDROME
     Route: 048
     Dates: start: 20070701, end: 20070724
  2. PROVIGIL [Suspect]
     Route: 048
     Dates: start: 20070725
  3. PROVIGIL [Suspect]
     Route: 048
     Dates: start: 20090809
  4. NEXIUM [Concomitant]
     Indication: GASTROOESOPHAGEAL REFLUX DISEASE
     Route: 048
     Dates: start: 20080101
  5. SINGULAIR [Concomitant]
     Indication: MULTIPLE ALLERGIES
     Route: 048
     Dates: start: 20040101
  6. BIRTH CONTROL [Concomitant]
     Indication: ORAL CONTRACEPTION
     Route: 048
  7. SINGULAIR [Concomitant]
     Indication: ASTHMA
  8. ADVAIR DISKUS 100/50 [Concomitant]
     Indication: ASTHMA
  9. MELOXACAM [Concomitant]
     Indication: ARTHRITIS
     Route: 048
     Dates: start: 20080101
  10. PROVIGIL [Suspect]
     Indication: FATIGUE
     Route: 048
     Dates: start: 20070601, end: 20070601
  11. MULTI-VITAMIN [Concomitant]
     Indication: MEDICAL DIET
     Route: 048
  12. ZINC [Concomitant]
     Indication: MEDICAL DIET
     Route: 048
  13. CELEBREX [Concomitant]
     Indication: PAIN
     Route: 048
     Dates: start: 20070601
  14. SYNTHROID [Concomitant]
     Indication: THYROID DISORDER
     Route: 048
     Dates: start: 20090201
  15. EXCEDRIN (MIGRAINE) [Concomitant]
     Indication: MIGRAINE
     Route: 048
     Dates: start: 20090601
  16. AXERT [Concomitant]
     Indication: MIGRAINE
     Route: 048
     Dates: start: 20010101
  17. ADVAIR DISKUS 100/50 [Concomitant]
     Indication: MULTIPLE ALLERGIES
     Dosage: 50/500
     Dates: start: 20040101
  18. FISH OIL [Concomitant]
     Indication: VITAMIN SUPPLEMENTATION

REACTIONS (7)
  - EPISTAXIS [None]
  - MEDICATION ERROR [None]
  - LOSS OF CONSCIOUSNESS [None]
  - EARLY SATIETY [None]
  - DIARRHOEA [None]
  - NAUSEA [None]
  - DRUG INEFFECTIVE FOR UNAPPROVED INDICATION [None]
